FAERS Safety Report 5758602-6 (Version None)
Quarter: 2008Q2

REPORT INFORMATION
  Report Type: 
  Country: None (occurrence: None)
  Receive Date: 20080604
  Receipt Date: 20080523
  Transmission Date: 20081010
  Serious: Yes (Other)
  Sender: FDA-Public Use
  Company Number: B0522580A

PATIENT
  Age: 45 Year
  Sex: Female
  Weight: 48 kg

DRUGS (4)
  1. ZOPHREN [Suspect]
     Route: 048
  2. TAXOTERE [Suspect]
     Indication: BREAST CANCER
     Route: 042
     Dates: start: 20080201, end: 20080225
  3. HERCEPTIN [Suspect]
     Indication: BREAST CANCER
     Route: 042
     Dates: start: 20080201
  4. PRIMPERAN TAB [Suspect]
     Route: 048

REACTIONS (6)
  - ERYTHEMA [None]
  - MYALGIA [None]
  - NAIL TOXICITY [None]
  - RADIATION MUCOSITIS [None]
  - SKIN EXFOLIATION [None]
  - SKIN TOXICITY [None]
